FAERS Safety Report 26028413 (Version 2)
Quarter: 2025Q4

REPORT INFORMATION
  Report Type: Spontaneous
  Country: JP (occurrence: JP)
  Receive Date: 20251111
  Receipt Date: 20251124
  Transmission Date: 20260118
  Serious: Yes (Hospitalization)
  Sender: NOVO NORDISK
  Company Number: JP-NOVOPROD-1555966

PATIENT
  Age: 4 Decade
  Sex: Female
  Weight: 46.8 kg

DRUGS (7)
  1. SOGROYA [Suspect]
     Active Substance: SOMAPACITAN-BECO
     Indication: Hypopituitarism
     Dosage: 1 MG, QW
     Route: 058
     Dates: start: 202411
  2. SOGROYA [Suspect]
     Active Substance: SOMAPACITAN-BECO
     Dosage: 2 MG, QW
     Route: 058
  3. SOGROYA [Suspect]
     Active Substance: SOMAPACITAN-BECO
     Dosage: 2.60 MG, QW
     Route: 058
  4. CORTRIL [Concomitant]
     Active Substance: HYDROCORTISONE
     Indication: Hypopituitarism
     Dosage: 15 MG, QD
     Route: 048
  5. LEVOTHYROXINE SODIUM [Concomitant]
     Active Substance: LEVOTHYROXINE SODIUM
     Indication: Hypopituitarism
     Dosage: 75.00 UG PER DAY
     Route: 048
  6. DESMOPRESSIN [Concomitant]
     Active Substance: DESMOPRESSIN
     Indication: Hypopituitarism
     Dosage: 5.00 UG/DAY
  7. ESTRADIOL [Concomitant]
     Active Substance: ESTRADIOL
     Indication: Hypopituitarism
     Dosage: 0.72 MG, QD

REACTIONS (1)
  - Neoplasm [Not Recovered/Not Resolved]

NARRATIVE: CASE EVENT DATE: 20250101
